FAERS Safety Report 8095559-X (Version None)
Quarter: 2012Q1

REPORT INFORMATION
  Report Type: 
  Country: None (occurrence: None)
  Receive Date: 20120131
  Receipt Date: 20120125
  Transmission Date: 20120608
  Serious: Yes (Death, Other)
  Sender: FDA-Public Use
  Company Number: US-AMGEN-USASP2011051605

PATIENT
  Age: 76 Year
  Sex: Female
  Weight: 82.54 kg

DRUGS (11)
  1. RITUXAN [Concomitant]
     Indication: IDIOPATHIC THROMBOCYTOPENIC PURPURA
     Dosage: 750 MG, QWK
     Route: 042
     Dates: start: 20100601, end: 20100623
  2. AMLODIPINE BESYLATE [Concomitant]
  3. GLIPIZIDE [Concomitant]
  4. SYNTHROID [Concomitant]
  5. TRICOR [Concomitant]
  6. NPLATE [Suspect]
     Indication: IDIOPATHIC THROMBOCYTOPENIC PURPURA
     Dosage: 350 MUG, QWK
     Route: 058
     Dates: start: 20100421, end: 20100630
  7. CORTICOSTEROIDS [Concomitant]
     Indication: IDIOPATHIC THROMBOCYTOPENIC PURPURA
  8. DEXAMETHASONE [Concomitant]
     Indication: IDIOPATHIC THROMBOCYTOPENIC PURPURA
     Dosage: 4 MG, QOD
  9. DIOVAN HCT [Concomitant]
  10. DANAZOL [Concomitant]
     Indication: IDIOPATHIC THROMBOCYTOPENIC PURPURA
     Dosage: 400 MG, UNK
     Dates: start: 20100519
  11. PREDNISONE TAB [Concomitant]
     Indication: IDIOPATHIC THROMBOCYTOPENIC PURPURA

REACTIONS (6)
  - FATIGUE [None]
  - SCLERAL HAEMORRHAGE [None]
  - DYSPNOEA EXERTIONAL [None]
  - PLATELET COUNT DECREASED [None]
  - DEATH [None]
  - ASTHENIA [None]
